FAERS Safety Report 15310053 (Version 2)
Quarter: 2018Q4

REPORT INFORMATION
  Report Type: Spontaneous
  Country: FR (occurrence: FR)
  Receive Date: 20180823
  Receipt Date: 20181228
  Transmission Date: 20190204
  Serious: Yes (Other)
  Sender: FDA-Public Use
  Company Number: FR-AUROBINDO-AUR-APL-2018-042971

PATIENT
  Age: 89 Year
  Sex: Male

DRUGS (10)
  1. TOPALGIC                           /00599202/ [Suspect]
     Active Substance: TRAMADOL HYDROCHLORIDE
     Indication: ANALGESIC INTERVENTION SUPPORTIVE THERAPY
     Dosage: 30 GTT, 1 DAY
     Route: 048
     Dates: end: 20180725
  2. PARACETAMOL [Suspect]
     Active Substance: ACETAMINOPHEN
     Dosage: 3 G, 1 DAY
     Route: 048
     Dates: end: 20180801
  3. TRAZODONE [Suspect]
     Active Substance: TRAZODONE HYDROCHLORIDE
     Indication: DEPRESSION
     Dosage: 100 MG LE SOIR
     Route: 048
     Dates: start: 20161027, end: 20180725
  4. COUMADINE [Suspect]
     Active Substance: WARFARIN SODIUM
     Indication: ATRIAL FIBRILLATION
     Dosage: 3 MG, 1 DAY
     Route: 048
     Dates: start: 20100101, end: 20180725
  5. LASILIX                            /00032601/ [Suspect]
     Active Substance: FUROSEMIDE
     Indication: PRODUCT USED FOR UNKNOWN INDICATION
     Dosage: 20 MG LE MATIN
     Route: 048
     Dates: end: 20180801
  6. INIPOMP [Concomitant]
     Active Substance: PANTOPRAZOLE SODIUM
     Indication: PRODUCT USED FOR UNKNOWN INDICATION
     Dosage: 20 MG LE SOIR PUIS 40 MG MATIN ET SOIR
     Route: 048
     Dates: start: 20161027
  7. PARACETAMOL [Suspect]
     Active Substance: ACETAMINOPHEN
     Indication: ANALGESIC INTERVENTION SUPPORTIVE THERAPY
     Dosage: 3 G, 1 DAY
     Route: 048
     Dates: end: 20180801
  8. TAHOR [Suspect]
     Active Substance: ATORVASTATIN CALCIUM
     Indication: CARDIOVASCULAR EVENT PROPHYLAXIS
     Dosage: 20 MG LE SOIR
     Route: 048
     Dates: start: 20161027, end: 20180725
  9. TRANSIPEG                          /00754501/ [Suspect]
     Active Substance: POLYETHYLENE GLYCOL 3350
     Indication: PRODUCT USED FOR UNKNOWN INDICATION
     Dosage: 4.9 G LE MATIN
     Route: 048
     Dates: start: 20161027, end: 20180801
  10. CARDENSIEL [Suspect]
     Active Substance: BISOPROLOL FUMARATE
     Indication: HYPERTENSION
     Dosage: 10 MG LE MATIN
     Route: 048
     Dates: start: 20161027, end: 20180801

REACTIONS (2)
  - Blood alkaline phosphatase increased [Not Recovered/Not Resolved]
  - Gamma-glutamyltransferase increased [Not Recovered/Not Resolved]

NARRATIVE: CASE EVENT DATE: 20180725
